FAERS Safety Report 4974973-2 (Version None)
Quarter: 2006Q2

REPORT INFORMATION
  Report Type: 
  Country: None (occurrence: None)
  Receive Date: 20060414
  Receipt Date: 20060414
  Transmission Date: 20061013
  Serious: Yes (Life-Threatening, Hospitalization)
  Sender: FDA-Public Use
  Company Number: None

PATIENT
  Age: 64 Year
  Sex: Female
  Weight: 95 kg

DRUGS (2)
  1. CLOZAPINE [Suspect]
     Indication: SCHIZOPHRENIA
     Dosage: 50 MG AND 300 MG BID AND HS PO
     Route: 048
     Dates: start: 20060301, end: 20060323
  2. RISPERDAL [Suspect]
     Indication: SCHIZOPHRENIA
     Dosage: 1 MG BID PO
     Route: 048
     Dates: start: 20060323, end: 20060324

REACTIONS (6)
  - ANXIETY [None]
  - HALLUCINATION [None]
  - LOSS OF CONSCIOUSNESS [None]
  - MENTAL IMPAIRMENT [None]
  - NEUROLEPTIC MALIGNANT SYNDROME [None]
  - PHARMACEUTICAL PRODUCT COMPLAINT [None]
